FAERS Safety Report 15646322 (Version 1)
Quarter: 2018Q4

REPORT INFORMATION
  Report Type: Spontaneous
  Country: US (occurrence: US)
  Receive Date: 20181121
  Receipt Date: 20181121
  Transmission Date: 20190205
  Serious: Yes (Other)
  Sender: FDA-Public Use
  Company Number: US-ALVOGEN-2018-ALVOGEN-095843

PATIENT
  Sex: Male
  Weight: 85.73 kg

DRUGS (7)
  1. METFORMIN [Concomitant]
     Active Substance: METFORMIN HYDROCHLORIDE
     Indication: DIABETES MELLITUS
     Route: 048
     Dates: start: 2010
  2. BABY ASPIRIN [Concomitant]
     Active Substance: ASPIRIN
     Indication: PROPHYLAXIS
     Route: 048
     Dates: start: 2013
  3. PULMICORT FLEXHALER [Suspect]
     Active Substance: BUDESONIDE
     Indication: ASTHMA
     Route: 055
  4. PROAIR HFA [Concomitant]
     Active Substance: ALBUTEROL SULFATE
     Indication: DYSPNOEA
     Route: 055
     Dates: start: 20180211
  5. LISINOPRIL. [Suspect]
     Active Substance: LISINOPRIL
     Indication: BLOOD CHOLESTEROL
     Route: 048
     Dates: start: 2000
  6. ALLOPURINOL. [Concomitant]
     Active Substance: ALLOPURINOL
     Indication: HYPERTENSION
     Route: 048
     Dates: start: 2000
  7. PRAVASTATIN. [Concomitant]
     Active Substance: PRAVASTATIN
     Indication: GOUT
     Route: 048
     Dates: start: 2000

REACTIONS (4)
  - Blood cholesterol [Not Recovered/Not Resolved]
  - Hypertension [Not Recovered/Not Resolved]
  - Gout [Not Recovered/Not Resolved]
  - Tinnitus [Not Recovered/Not Resolved]
